FAERS Safety Report 4494585-7 (Version None)
Quarter: 2004Q4

REPORT INFORMATION
  Report Type: 
  Country: None (occurrence: None)
  Receive Date: 20041103
  Receipt Date: 20041022
  Transmission Date: 20050328
  Serious: Yes (Hospitalization)
  Sender: FDA-Public Use
  Company Number: S04-ESP-07234-01

PATIENT
  Age: 86 Year
  Sex: Female
  Weight: 60 kg

DRUGS (5)
  1. MEMANTINE [Suspect]
     Dosage: 20 MG QD PO
     Route: 048
     Dates: start: 20040728, end: 20040920
  2. ENALAPRIL [Concomitant]
  3. ACETYLSALICYLIC ACID [Concomitant]
  4. OMEPRAZOLE [Concomitant]
  5. RISPERIDONE [Concomitant]

REACTIONS (3)
  - ATRIAL FIBRILLATION [None]
  - OEDEMA PERIPHERAL [None]
  - PLEURAL EFFUSION [None]
